FAERS Safety Report 11286318 (Version 1)
Quarter: 2015Q3

REPORT INFORMATION
  Report Type: Spontaneous
  Country: US (occurrence: US)
  Receive Date: 20150721
  Receipt Date: 20150721
  Transmission Date: 20151125
  Serious: No
  Sender: FDA-Public Use
  Company Number: US-UNITED THERAPEUTICS-UNT-2015-003238

PATIENT
  Age: 51 Year
  Sex: Female
  Weight: 79.37 kg

DRUGS (8)
  1. ORENITRAM [Suspect]
     Active Substance: TREPROSTINIL
     Indication: PULMONARY HYPERTENSION
     Dosage: 8 MG, TID
     Route: 048
     Dates: start: 20150306
  2. ORENITRAM [Suspect]
     Active Substance: TREPROSTINIL
     Dosage: 7.5 MG, TID
     Route: 048
     Dates: start: 20150306
  3. ORENITRAM [Suspect]
     Active Substance: TREPROSTINIL
     Dosage: UNK
     Dates: start: 20150209
  4. ORENITRAM [Suspect]
     Active Substance: TREPROSTINIL
     Dosage: UNK
  5. TRACLEER [Concomitant]
     Active Substance: BOSENTAN
     Indication: PRODUCT USED FOR UNKNOWN INDICATION
  6. ORENITRAM [Suspect]
     Active Substance: TREPROSTINIL
     Indication: PULMONARY ARTERIAL HYPERTENSION
     Dosage: 2.5 MG, TID
     Route: 048
  7. ASPIRIN                            /00002701/ [Concomitant]
     Active Substance: ASPIRIN
     Indication: PRODUCT USED FOR UNKNOWN INDICATION
  8. ORENITRAM [Suspect]
     Active Substance: TREPROSTINIL
     Dosage: UNK

REACTIONS (12)
  - Incorrect dose administered [Unknown]
  - Pain in extremity [Recovering/Resolving]
  - Palpitations [Unknown]
  - Flushing [Unknown]
  - Nausea [Recovering/Resolving]
  - Sinus congestion [Unknown]
  - Middle insomnia [Unknown]
  - Dyspnoea [Unknown]
  - Sinus headache [Unknown]
  - Pain in jaw [Recovering/Resolving]
  - Treatment noncompliance [Unknown]
  - Headache [Unknown]

NARRATIVE: CASE EVENT DATE: 201503
